FAERS Safety Report 18959134 (Version 3)
Quarter: 2025Q1

REPORT INFORMATION
  Report Type: Spontaneous
  Country: JP (occurrence: JP)
  Receive Date: 20210302
  Receipt Date: 20250217
  Transmission Date: 20250409
  Serious: Yes (Death, Other)
  Sender: ELI LILLY AND COMPANY
  Company Number: JP-ELI_LILLY_AND_COMPANY-JP202102013260

PATIENT
  Age: 3 Year
  Sex: Female
  Weight: 4.2 kg

DRUGS (5)
  1. ADCIRCA [Suspect]
     Active Substance: TADALAFIL
     Indication: Pulmonary arterial hypertension
     Dosage: 5 MG, DAILY
     Route: 048
     Dates: start: 20170301, end: 20201013
  2. UPTRAVI [Suspect]
     Active Substance: SELEXIPAG
     Indication: Pulmonary arterial hypertension
     Dosage: 0.025 MG, BID
     Route: 048
     Dates: start: 20200702, end: 20201013
  3. VANCOMYCIN [Suspect]
     Active Substance: VANCOMYCIN
     Indication: Product used for unknown indication
     Route: 065
  4. OPSUMIT [Concomitant]
     Active Substance: MACITENTAN
     Indication: Pulmonary arterial hypertension
     Dates: start: 20171227, end: 20201013
  5. TOLVAPTAN [Concomitant]
     Active Substance: TOLVAPTAN
     Indication: Oliguria
     Dates: start: 20170305, end: 20201013

REACTIONS (5)
  - Sepsis [Fatal]
  - Pneumonia [Unknown]
  - Klebsiella bacteraemia [Unknown]
  - Off label use [Unknown]
  - Chronic respiratory disease [Unknown]

NARRATIVE: CASE EVENT DATE: 20170301
